FAERS Safety Report 5129099-4 (Version None)
Quarter: 2006Q4

REPORT INFORMATION
  Report Type: 
  Country: None (occurrence: None)
  Receive Date: 20061016
  Receipt Date: 20061016
  Transmission Date: 20070319
  Serious: Yes (Disabling)
  Sender: FDA-Public Use
  Company Number: None

PATIENT
  Age: 62 Year
  Sex: Female
  Weight: 77.1115 kg

DRUGS (1)
  1. TRILYTE [Suspect]
     Indication: COLONOSCOPY
     Dosage: 8 OZ UNTIL 64 IS CONSUMED 10 - 15 MINUTES PO
     Route: 048
     Dates: start: 20061009, end: 20061009

REACTIONS (9)
  - ASTHENIA [None]
  - BLOOD PRESSURE ABNORMAL [None]
  - CHEST PAIN [None]
  - ELECTROLYTE IMBALANCE [None]
  - ERYTHEMA [None]
  - FEELING HOT [None]
  - PULSE ABNORMAL [None]
  - SYNCOPE [None]
  - TREMOR [None]
